FAERS Safety Report 24702695 (Version 1)
Quarter: 2024Q4

REPORT INFORMATION
  Report Type: Spontaneous
  Country: CN (occurrence: CN)
  Receive Date: 20241205
  Receipt Date: 20241205
  Transmission Date: 20250115
  Serious: Yes (Hospitalization, Other)
  Sender: MERCK
  Company Number: CN-009507513-2411CHN012467

PATIENT
  Age: 67 Year
  Sex: Male

DRUGS (1)
  1. CILASTATIN SODIUM\IMIPENEM [Suspect]
     Active Substance: CILASTATIN SODIUM\IMIPENEM
     Indication: Infection
     Dosage: 1 G, Q8H
     Route: 041
     Dates: start: 20240922, end: 20241005

REACTIONS (3)
  - Ototoxicity [Recovering/Resolving]
  - Hypoacusis [Recovering/Resolving]
  - Rales [Unknown]

NARRATIVE: CASE EVENT DATE: 20241001
